FAERS Safety Report 4348836-X (Version None)
Quarter: 2004Q2

REPORT INFORMATION
  Report Type: 
  Country: None (occurrence: None)
  Receive Date: 20040423
  Receipt Date: 20040331
  Transmission Date: 20050107
  Serious: Yes (Hospitalization, Other)
  Sender: FDA-Public Use
  Company Number: 061-0981-M0000206

PATIENT
  Age: 68 Year
  Sex: Male
  Weight: 72.5 kg

DRUGS (4)
  1. ATORVASTATIN (ATORVASTATIN) [Suspect]
     Indication: HYPERLIPIDAEMIA
     Dosage: SEE IMAGE
     Route: 048
     Dates: start: 19990818, end: 19991012
  2. ATORVASTATIN (ATORVASTATIN) [Suspect]
     Indication: HYPERLIPIDAEMIA
     Dosage: SEE IMAGE
     Route: 048
     Dates: start: 20000429, end: 20000430
  3. ACETYLSALICYLIC ACID SRT [Concomitant]
  4. TRIMETHOPRIM [Concomitant]

REACTIONS (7)
  - ABDOMINAL DISTENSION [None]
  - ABDOMINAL PAIN LOWER [None]
  - DYSURIA [None]
  - HAEMATURIA [None]
  - PROSTATITIS [None]
  - TRANSITIONAL CELL CARCINOMA [None]
  - URINARY RETENTION [None]
